FAERS Safety Report 5819478-1 (Version None)
Quarter: 2008Q3

REPORT INFORMATION
  Report Type: 
  Country: None (occurrence: None)
  Receive Date: 20080723
  Receipt Date: 20080715
  Transmission Date: 20090109
  Serious: Yes (Other)
  Sender: FDA-Public Use
  Company Number: NL-JNJFOC-20080306493

PATIENT
  Age: 5 Year
  Sex: Female

DRUGS (2)
  1. TOPIRAMATE [Suspect]
     Indication: HEMIPLEGIA
  2. FLUNARIZINE [Suspect]
     Indication: HEMIPLEGIA

REACTIONS (2)
  - CONDITION AGGRAVATED [None]
  - HEMIPLEGIA [None]
